FAERS Safety Report 7757666-8 (Version None)
Quarter: 2011Q3

REPORT INFORMATION
  Report Type: 
  Country: None (occurrence: None)
  Receive Date: 20110916
  Receipt Date: 20110913
  Transmission Date: 20111222
  Serious: Yes (Hospitalization, Other)
  Sender: FDA-Public Use
  Company Number: FR-AMGEN-FRACT2011045622

PATIENT
  Age: 73 Year
  Sex: Male

DRUGS (5)
  1. DENOSUMAB [Suspect]
     Indication: METASTASES TO BONE
     Dosage: UNK UNK, Q3WK
     Route: 042
     Dates: start: 20080528, end: 20100521
  2. CLONAZEPAM [Concomitant]
     Indication: EPILEPSY
     Dosage: UNK UNK, QD
  3. PREDNISONE [Concomitant]
     Indication: PREMEDICATION
     Dosage: UNK UNK, QD
  4. KEPPRA [Concomitant]
     Indication: EPILEPSY
     Dosage: 500 MG, BID
     Route: 048
     Dates: start: 20100301
  5. TAXOTERE [Concomitant]
     Dosage: 75 MG/M2, UNK
     Dates: start: 20090623

REACTIONS (1)
  - PAIN IN JAW [None]
